FAERS Safety Report 17639715 (Version 3)
Quarter: 2020Q2

REPORT INFORMATION
  Report Type: Spontaneous
  Country: IT (occurrence: IT)
  Receive Date: 20200407
  Receipt Date: 20200605
  Transmission Date: 20200713
  Serious: Yes (Hospitalization, Other)
  Sender: FDA-Public Use
  Company Number: NVSC2020IT094004

PATIENT

DRUGS (14)
  1. CEFTRIAXONE. [Suspect]
     Active Substance: CEFTRIAXONE
     Indication: DERMATITIS ALLERGIC
     Dosage: 2 MG/ML
     Route: 065
  2. CLINDAMYCIN. [Suspect]
     Active Substance: CLINDAMYCIN
     Indication: DERMATITIS ALLERGIC
     Dosage: 15 MG/ML
     Route: 065
  3. AMPICILLIN+SULBACTAM [Suspect]
     Active Substance: AMPICILLIN SODIUM\SULBACTAM SODIUM
     Indication: DERMATITIS ALLERGIC
     Dosage: 20 MG/ML
     Route: 065
  4. VANCOMYCIN [Suspect]
     Active Substance: VANCOMYCIN
     Indication: DERMATITIS ALLERGIC
     Dosage: 0.1 MG/ML
     Route: 065
  5. AMOXICILLIN,CLAVULANIC ACID [Suspect]
     Active Substance: AMOXICILLIN\CLAVULANIC ACID
     Indication: ANTI-INFECTIVE THERAPY
  6. CLARITHROMYCIN. [Suspect]
     Active Substance: CLARITHROMYCIN
     Indication: ANTI-INFECTIVE THERAPY
  7. KETOPROFEN. [Suspect]
     Active Substance: KETOPROFEN
     Indication: PRODUCT USED FOR UNKNOWN INDICATION
     Route: 065
  8. GENTAMICIN. [Suspect]
     Active Substance: GENTAMICIN
     Indication: DERMATITIS ALLERGIC
     Dosage: 4 MG/ML
     Route: 065
  9. CLARITHROMYCIN. [Suspect]
     Active Substance: CLARITHROMYCIN
     Indication: DERMATITIS ALLERGIC
     Dosage: 0.5-0.05 MG/ML
     Route: 065
  10. OXACILLIN [Suspect]
     Active Substance: OXACILLIN SODIUM
     Indication: DERMATITIS ALLERGIC
     Dosage: 20 MG/ML
     Route: 065
  11. ACETYLSALICYLIC ACID [Suspect]
     Active Substance: ASPIRIN
     Indication: ANALGESIC THERAPY
     Route: 065
  12. IBUPROFEN. [Suspect]
     Active Substance: IBUPROFEN
     Indication: ANALGESIC THERAPY
     Route: 065
  13. AMOXICILLIN,CLAVULANIC ACID [Suspect]
     Active Substance: AMOXICILLIN\CLAVULANIC ACID
     Indication: DERMATITIS ALLERGIC
     Dosage: 20 MG/ML
     Route: 065
  14. TEICOPLANIN [Suspect]
     Active Substance: TEICOPLANIN
     Indication: DERMATITIS ALLERGIC
     Dosage: 2 MG/ML
     Route: 065

REACTIONS (3)
  - Stevens-Johnson syndrome [Recovered/Resolved]
  - Linear IgA disease [Unknown]
  - Product use in unapproved indication [Unknown]
